FAERS Safety Report 5220911-7 (Version None)
Quarter: 2007Q1

REPORT INFORMATION
  Report Type: 
  Country: None (occurrence: None)
  Receive Date: 20070125
  Receipt Date: 20070125
  Transmission Date: 20070707
  Serious: Yes (Hospitalization)
  Sender: FDA-Public Use
  Company Number: None

PATIENT
  Sex: Male
  Weight: 117.9352 kg

DRUGS (11)
  1. LEXAPRO [Suspect]
     Indication: DEPRESSION
     Dosage: PO
     Route: 048
     Dates: start: 20060202
  2. TOPROL-XL [Concomitant]
  3. ZETIA [Concomitant]
  4. ALLOPURINOL SODIUM [Concomitant]
  5. BENICAR HCT [Concomitant]
  6. VITAMINS [Concomitant]
  7. ASPIRIN [Concomitant]
  8. ADVAIR DISKUS 100/50 [Concomitant]
  9. SINGULAIR [Concomitant]
  10. ALBUTEROL [Concomitant]
  11. COMBIVENT [Concomitant]

REACTIONS (3)
  - DISTURBANCE IN ATTENTION [None]
  - DIZZINESS [None]
  - PARAESTHESIA [None]
